FAERS Safety Report 6784087-7 (Version None)
Quarter: 2010Q2

REPORT INFORMATION
  Report Type: 
  Country: None (occurrence: None)
  Receive Date: 20100622
  Receipt Date: 20100611
  Transmission Date: 20101027
  Serious: Yes (Hospitalization)
  Sender: FDA-Public Use
  Company Number: US-JNJFOC-20100306227

PATIENT
  Sex: Female
  Weight: 73.6 kg

DRUGS (13)
  1. REMICADE [Suspect]
     Indication: CROHN'S DISEASE
     Dosage: WEEK 0
     Route: 042
  2. ENTOCORT EC [Concomitant]
     Indication: CROHN'S DISEASE
  3. PROZAC [Concomitant]
     Indication: OBSESSIVE-COMPULSIVE DISORDER
  4. PROZAC [Concomitant]
     Indication: ANXIETY
  5. PREVACID [Concomitant]
     Indication: GASTROOESOPHAGEAL REFLUX DISEASE
  6. ZYRTEC [Concomitant]
     Indication: MULTIPLE ALLERGIES
  7. LO-OVRAL 1 TAB ORAL CONTRACEPTION [Concomitant]
     Indication: CONTRACEPTION
  8. MULTIPLE VITAMIN [Concomitant]
  9. IRON [Concomitant]
  10. ZOFRAN [Concomitant]
     Indication: NAUSEA
  11. NASONEX [Concomitant]
     Indication: MULTIPLE ALLERGIES
     Route: 055
  12. TYLENOL [Concomitant]
     Indication: DISCOMFORT
     Dosage: RARELY
  13. TYLENOL [Concomitant]
     Indication: PYREXIA
     Dosage: RARELY

REACTIONS (2)
  - CLOSTRIDIAL INFECTION [None]
  - HEPATITIS [None]
